FAERS Safety Report 9597636 (Version 1)
Quarter: 2013Q4

REPORT INFORMATION
  Report Type: Spontaneous
  Country: US (occurrence: US)
  Receive Date: 20131004
  Receipt Date: 20131004
  Transmission Date: 20140711
  Serious: No
  Sender: FDA-Public Use
  Company Number: US-AMGEN-USASP2013019993

PATIENT
  Age: 30 Year
  Sex: Female

DRUGS (7)
  1. ENBREL [Suspect]
     Indication: ARTHRITIS
     Dosage: UNK
     Route: 058
     Dates: start: 201302
  2. ALBUTEROL                          /00139501/ [Concomitant]
     Dosage: UNK
  3. IMITREX                            /01044801/ [Concomitant]
     Dosage: UNK
  4. METOPROLOL [Concomitant]
     Dosage: UNK
  5. MVI [Concomitant]
     Dosage: UNK
  6. PLAQUENIL                          /00072602/ [Concomitant]
     Dosage: UNK
  7. VITAMINES B [Concomitant]
     Dosage: UNK

REACTIONS (1)
  - Injection site erythema [Unknown]
